FAERS Safety Report 7379209-3 (Version None)
Quarter: 2011Q1

REPORT INFORMATION
  Report Type: 
  Country: None (occurrence: None)
  Receive Date: 20110328
  Receipt Date: 20110318
  Transmission Date: 20110831
  Serious: Yes (Life-Threatening, Hospitalization)
  Sender: FDA-Public Use
  Company Number: PT-AMGEN-PRTSP2011015040

PATIENT
  Age: 15 Year
  Sex: Female
  Weight: 51 kg

DRUGS (1)
  1. ARANESP [Suspect]
     Indication: NEPHROGENIC ANAEMIA
     Dosage: 20 A?G, QD
     Route: 058
     Dates: start: 20091115

REACTIONS (2)
  - THROAT TIGHTNESS [None]
  - DYSPNOEA [None]
